FAERS Safety Report 4647318-5 (Version None)
Quarter: 2005Q2

REPORT INFORMATION
  Report Type: 
  Country: None (occurrence: None)
  Receive Date: 20050426
  Receipt Date: 20050411
  Transmission Date: 20051028
  Serious: Yes (Life-Threatening, Hospitalization)
  Sender: FDA-Public Use
  Company Number: EM2005-0191

PATIENT
  Age: 24 Year
  Sex: Male
  Weight: 73 kg

DRUGS (6)
  1. MACROLIN [Suspect]
     Indication: HIV INFECTION
     Dosage: SEE IMAGE
     Route: 058
     Dates: start: 20040629, end: 20040703
  2. MACROLIN [Suspect]
     Indication: HIV INFECTION
     Dosage: SEE IMAGE
     Route: 058
     Dates: start: 20040809, end: 20040813
  3. MACROLIN [Suspect]
     Indication: HIV INFECTION
     Dosage: SEE IMAGE
     Route: 058
     Dates: start: 20040510, end: 20050514
  4. EPIVIR [Concomitant]
  5. SUSTIVA [Concomitant]
  6. VIREAD [Concomitant]

REACTIONS (2)
  - LYMPHADENOPATHY [None]
  - PULMONARY TUBERCULOSIS [None]
